FAERS Safety Report 4615907-X (Version None)
Quarter: 2005Q1

REPORT INFORMATION
  Report Type: 
  Country: None (occurrence: None)
  Receive Date: 20050318
  Receipt Date: 20050311
  Transmission Date: 20050727
  Serious: Yes (Hospitalization)
  Sender: FDA-Public Use
  Company Number: 2005AP00500

PATIENT
  Age: 80 Year
  Sex: Male

DRUGS (6)
  1. ZOLADEX [Suspect]
     Dosage: 10.8 MG Q3MO SQ
     Route: 058
     Dates: start: 20040508, end: 20040508
  2. FLIVAS [Suspect]
  3. CLARITH [Concomitant]
  4. CRAVIT [Concomitant]
  5. HIRUDOID [Concomitant]
  6. MYSER [Concomitant]

REACTIONS (1)
  - INTERSTITIAL LUNG DISEASE [None]
